FAERS Safety Report 10027750 (Version 2)
Quarter: 2014Q3

REPORT INFORMATION
  Report Type: Spontaneous
  Country: US (occurrence: US)
  Receive Date: 20140321
  Receipt Date: 20140903
  Transmission Date: 20150326
  Serious: Yes (Hospitalization, Other)
  Sender: FDA-Public Use
  Company Number: US-BAYER-2014-042475

PATIENT
  Age: 33 Year
  Sex: Female
  Weight: 56.69 kg

DRUGS (11)
  1. BENZODIAZEPINE DERIVATIVES [Concomitant]
     Active Substance: BENZODIAZEPINE
     Indication: ANXIETY
  2. DOCUSATE SODIUM. [Concomitant]
     Active Substance: DOCUSATE SODIUM
  3. AMITRIPTYLINE HCL [Concomitant]
     Active Substance: AMITRIPTYLINE
     Dosage: 25 MG, UNK
     Dates: start: 20100914, end: 20101117
  4. YAZ [Suspect]
     Active Substance: DROSPIRENONE\ETHINYL ESTRADIOL
     Indication: CONTRACEPTION
     Dosage: UNK
     Route: 048
     Dates: start: 200907, end: 201012
  5. CENTRUM [Concomitant]
     Active Substance: VITAMINS
     Dosage: 1 DAILY
  6. LOESTRIN NOS [Concomitant]
     Active Substance: ETHINYL ESTRADIOL\NORETHINDRONE ACETATE
  7. VITAMIN C [Concomitant]
     Active Substance: ASCORBIC ACID
     Dosage: 1 DAILY
  8. CODEINE [Concomitant]
     Active Substance: CODEINE
  9. FERROUS SULFATE [Concomitant]
     Active Substance: FERROUS SULFATE\FERROUS SULFATE, DRIED
     Dosage: 60 MG, TID
     Route: 048
  10. RETIN-A MICRO [Concomitant]
     Active Substance: TRETINOIN
     Dosage: 0.04 %, UNK
     Dates: start: 20100914
  11. CYANOCOBALAMIN. [Concomitant]
     Active Substance: CYANOCOBALAMIN
     Dosage: 250 MG, QD
     Route: 048

REACTIONS (9)
  - Deep vein thrombosis [None]
  - Dyspnoea [None]
  - Dizziness [None]
  - Pulmonary embolism [None]
  - Injury [None]
  - Pelvic venous thrombosis [None]
  - Cerebrovascular accident [None]
  - General physical health deterioration [None]
  - Pain in extremity [None]

NARRATIVE: CASE EVENT DATE: 201011
